FAERS Safety Report 5076760-6 (Version None)
Quarter: 2006Q3

REPORT INFORMATION
  Report Type: 
  Country: None (occurrence: None)
  Receive Date: 20060725
  Receipt Date: 20060426
  Transmission Date: 20061208
  Serious: Yes (Hospitalization)
  Sender: FDA-Public Use
  Company Number: 200611642BWH

PATIENT
  Age: 60 Year
  Sex: Female

DRUGS (10)
  1. NEXAVAR [Suspect]
     Dosage: BID, ORAL
     Route: 048
     Dates: start: 20060217, end: 20060227
  2. LORTAB [Concomitant]
  3. PREVACID [Concomitant]
  4. LISINOPRIL [Concomitant]
  5. ASPIRIN [Concomitant]
  6. METFORMIN HCL [Concomitant]
  7. IRON [Concomitant]
  8. NYSTATIN [Concomitant]
  9. NIZATIDINE [Concomitant]
  10. SMAC [Concomitant]

REACTIONS (9)
  - ABDOMINAL PAIN UPPER [None]
  - BLOOD ALKALINE PHOSPHATASE INCREASED [None]
  - CHILLS [None]
  - DEHYDRATION [None]
  - HYPOTENSION [None]
  - LIPASE INCREASED [None]
  - NAUSEA [None]
  - PANCREATITIS ACUTE [None]
  - VOMITING [None]
